FAERS Safety Report 12958430 (Version 1)
Quarter: 2016Q4

REPORT INFORMATION
  Report Type: Spontaneous
  Country: US (occurrence: US)
  Receive Date: 20161121
  Receipt Date: 20161121
  Transmission Date: 20170207
  Serious: No
  Sender: FDA-Public Use
  Company Number: US-AMGEN-USASP2016161087

PATIENT
  Age: 52 Year
  Sex: Female

DRUGS (1)
  1. ENBREL [Suspect]
     Active Substance: ETANERCEPT
     Indication: RHEUMATOID ARTHRITIS
     Dosage: 50 MG, QWK
     Route: 065

REACTIONS (7)
  - Intentional product misuse [Unknown]
  - Injection site pain [Unknown]
  - Pain in extremity [Unknown]
  - Injection site pruritus [Unknown]
  - Injection site reaction [Unknown]
  - Urticaria [Unknown]
  - Injection site swelling [Unknown]
